FAERS Safety Report 8957523 (Version 1)
Quarter: 2012Q4

REPORT INFORMATION
  Report Type: Report from Study
  Country: GB (occurrence: GB)
  Receive Date: 20121211
  Receipt Date: 20121211
  Transmission Date: 20130627
  Serious: Yes (Death)
  Sender: FDA-Public Use
  Company Number: GB-CELGENEUS-167-FK228-12120665

PATIENT
  Age: 52 Year
  Sex: Male

DRUGS (1)
  1. ROMIDEPSIN [Suspect]
     Indication: T-CELL LYMPHOMA
     Route: 065

REACTIONS (1)
  - T-cell lymphoma [Fatal]
